FAERS Safety Report 7479618-8 (Version None)
Quarter: 2011Q2

REPORT INFORMATION
  Report Type: 
  Country: None (occurrence: None)
  Receive Date: 20110513
  Receipt Date: 20110511
  Transmission Date: 20111010
  Serious: Yes (Other)
  Sender: FDA-Public Use
  Company Number: JP-PFIZER INC-2011101444

PATIENT
  Sex: Female

DRUGS (2)
  1. ALBUTEROL [Suspect]
     Indication: ASTHMA
     Route: 055
  2. HYDROCORTISONE SODIUM SUCCINATE [Suspect]
     Indication: ASTHMA
     Dosage: UNK KG, UNK
     Route: 042

REACTIONS (2)
  - SINUS BRADYCARDIA [None]
  - BRAIN NATRIURETIC PEPTIDE INCREASED [None]
